FAERS Safety Report 23377745 (Version 4)
Quarter: 2024Q1

REPORT INFORMATION
  Report Type: Spontaneous
  Country: US (occurrence: US)
  Receive Date: 20240108
  Receipt Date: 20240202
  Transmission Date: 20240409
  Serious: No
  Sender: FDA-Public Use
  Company Number: US-SANOFI-01891214

PATIENT
  Age: 11 Year
  Sex: Male
  Weight: 35 kg

DRUGS (11)
  1. THYMOGLOBULIN [Suspect]
     Active Substance: LAPINE T-LYMPHOCYTE IMMUNE GLOBULIN
     Indication: Prophylaxis against transplant rejection
     Dosage: 15 MG, QD
     Dates: start: 20231215, end: 20231217
  2. THYMOGLOBULIN [Suspect]
     Active Substance: LAPINE T-LYMPHOCYTE IMMUNE GLOBULIN
     Dosage: 30 MG, QD
     Dates: start: 20231220, end: 20231220
  3. THYMOGLOBULIN [Suspect]
     Active Substance: LAPINE T-LYMPHOCYTE IMMUNE GLOBULIN
     Dosage: 30 MG, QD
     Dates: start: 20231221, end: 20231221
  4. TACROLIMUS [Concomitant]
     Active Substance: TACROLIMUS
     Indication: Immunosuppression
     Dosage: 0.5 MG, Q12H
     Route: 048
     Dates: start: 2013
  5. SIROLIMUS [Concomitant]
     Active Substance: SIROLIMUS
     Indication: Immunosuppression
     Dosage: 0.5 MG, Q24D
     Route: 048
     Dates: start: 2015
  6. PREDNISOLONE [Concomitant]
     Active Substance: PREDNISOLONE
     Indication: Immunosuppression
     Dosage: UNK
     Dates: start: 2015
  7. METHYLPREDNISOLONE [Concomitant]
     Active Substance: METHYLPREDNISOLONE
     Indication: Prophylaxis
     Dosage: 150 MG, Q12H
     Route: 042
     Dates: start: 20231214, end: 20231217
  8. METHYLPREDNISOLONE [Concomitant]
     Active Substance: METHYLPREDNISOLONE
     Indication: Premedication
     Dosage: 30 MG, QD
     Route: 042
     Dates: start: 20231218, end: 20231221
  9. METHYLPREDNISOLONE [Concomitant]
     Active Substance: METHYLPREDNISOLONE
     Dosage: 20 MG, QD
     Route: 042
     Dates: start: 20231219, end: 20231220
  10. DARZALEX [Concomitant]
     Active Substance: DARATUMUMAB
     Indication: Transplant rejection
     Dosage: 250 MG, QD
     Route: 042
     Dates: start: 20231219, end: 20231220
  11. GAMMAGARD [Concomitant]
     Active Substance: HUMAN IMMUNOGLOBULIN G
     Indication: Transplant rejection
     Dosage: 30 G, 1X
     Route: 042
     Dates: start: 20231218, end: 20231218

REACTIONS (4)
  - T-lymphocyte count increased [Recovered/Resolved]
  - T-lymphocyte count decreased [Unknown]
  - Drug ineffective for unapproved indication [Unknown]
  - Off label use [Unknown]

NARRATIVE: CASE EVENT DATE: 20231201
